FAERS Safety Report 7311459-4 (Version None)
Quarter: 2011Q1

REPORT INFORMATION
  Report Type: 
  Country: None (occurrence: None)
  Receive Date: 20110224
  Receipt Date: 20101026
  Transmission Date: 20110831
  Serious: No
  Sender: FDA-Public Use
  Company Number: US-BAYER-201023065BCC

PATIENT
  Sex: Female
  Weight: 71.818 kg

DRUGS (1)
  1. ALEVE [Suspect]
     Indication: DYSMENORRHOEA
     Dosage: 990 MG, TID
     Route: 048
     Dates: start: 20101025

REACTIONS (1)
  - SOMNOLENCE [None]
